FAERS Safety Report 5613626-4 (Version None)
Quarter: 2008Q1

REPORT INFORMATION
  Report Type: 
  Country: None (occurrence: None)
  Receive Date: 20080129
  Receipt Date: 20080123
  Transmission Date: 20080703
  Serious: Yes (Hospitalization)
  Sender: FDA-Public Use
  Company Number: 163-21880-07121038

PATIENT
  Age: 84 Year
  Sex: Male

DRUGS (1)
  1. REVLIMID [Suspect]
     Indication: MULTIPLE MYELOMA
     Dosage: 10 MG, 1 IN 1 D, ORAL
     Route: 048
     Dates: start: 20070615, end: 20071120

REACTIONS (5)
  - ANAESTHETIC COMPLICATION [None]
  - FALL [None]
  - JOINT DISLOCATION [None]
  - LOCAL SWELLING [None]
  - RASH GENERALISED [None]
